FAERS Safety Report 4663892-7 (Version None)
Quarter: 2005Q2

REPORT INFORMATION
  Report Type: 
  Country: None (occurrence: None)
  Receive Date: 20050516
  Receipt Date: 20050421
  Transmission Date: 20051028
  Serious: Yes (Hospitalization)
  Sender: FDA-Public Use
  Company Number: KII-2005-0016185

PATIENT
  Age: 18 Year
  Sex: Male

DRUGS (3)
  1. OXYCODONE HCL [Suspect]
     Dosage: SEE IMAGE
     Route: 048
  2. BENZODIAZEPINE DEROVATOVES [Suspect]
     Dosage: SEE IMAGE
     Route: 048
  3. ANTIPSYCHOTICS [Suspect]
     Dosage: ORAL
     Route: 048

REACTIONS (5)
  - AGGRESSION [None]
  - AGITATION [None]
  - INCORRECT DOSE ADMINISTERED [None]
  - MEDICATION ERROR [None]
  - TOXICOLOGIC TEST ABNORMAL [None]
